FAERS Safety Report 21720560 (Version 7)
Quarter: 2023Q2

REPORT INFORMATION
  Report Type: Spontaneous
  Country: JP (occurrence: JP)
  Receive Date: 20221213
  Receipt Date: 20230602
  Transmission Date: 20230721
  Serious: Yes (Other)
  Sender: FDA-Public Use
  Company Number: JP-ASTELLAS-2022JP014679

PATIENT
  Age: 4 Decade
  Sex: Male

DRUGS (13)
  1. XOSPATA [Suspect]
     Active Substance: GILTERITINIB
     Indication: Acute myeloid leukaemia recurrent
     Route: 048
     Dates: start: 20220818, end: 20221024
  2. XOSPATA [Suspect]
     Active Substance: GILTERITINIB
     Indication: Acute myeloid leukaemia refractory
     Route: 048
     Dates: start: 20221207, end: 202212
  3. XOSPATA [Suspect]
     Active Substance: GILTERITINIB
     Route: 048
     Dates: start: 202212
  4. XOSPATA [Suspect]
     Active Substance: GILTERITINIB
     Route: 048
     Dates: start: 20221229
  5. XOSPATA [Suspect]
     Active Substance: GILTERITINIB
     Dosage: 40 MG/DAY, UNKNOWN FREQ.
     Route: 048
     Dates: start: 20230209
  6. XOSPATA [Suspect]
     Active Substance: GILTERITINIB
     Dosage: 80 MG/DAY, UNKNOWN FREQ.
     Route: 048
     Dates: start: 20230309
  7. XOSPATA [Suspect]
     Active Substance: GILTERITINIB
     Dosage: 120 MG/DAY, UNKNOWN FREQ.
     Route: 048
  8. CALONAL [Suspect]
     Active Substance: ACETAMINOPHEN
     Indication: Product used for unknown indication
     Dosage: UNK UNK, UNKNOWN FREQ.
     Route: 065
  9. VALGANCICLOVIR HYDROCHLORIDE [Suspect]
     Active Substance: VALGANCICLOVIR HYDROCHLORIDE
     Indication: Cytomegalovirus infection
     Dosage: UNK UNK, UNKNOWN FREQ.
     Route: 048
     Dates: start: 202302, end: 20230208
  10. NOXAFIL [Suspect]
     Active Substance: POSACONAZOLE
     Indication: Product used for unknown indication
     Dosage: UNK UNK, UNKNOWN FREQ.
     Route: 048
     Dates: end: 20230309
  11. URSO [Concomitant]
     Active Substance: URSODIOL
     Indication: Hepatic enzyme increased
     Route: 065
  12. PROGRAF [Concomitant]
     Active Substance: TACROLIMUS
     Indication: Product used for unknown indication
     Dosage: UNK UNK, UNKNOWN FREQ.
     Route: 048
     Dates: start: 20230209
  13. MIYA-BM [Concomitant]
     Active Substance: CLOSTRIDIUM BUTYRICUM SPORES STRAIN M-55
     Indication: Product used for unknown indication
     Dosage: UNK UNK, UNKNOWN FREQ.
     Route: 065
     Dates: start: 20230209

REACTIONS (11)
  - Myelosuppression [Recovering/Resolving]
  - Renal impairment [Recovering/Resolving]
  - Taste disorder [Recovering/Resolving]
  - Aspartate aminotransferase increased [Recovered/Resolved]
  - Alanine aminotransferase increased [Recovered/Resolved]
  - Cytomegalovirus test positive [Recovering/Resolving]
  - Blood triglycerides increased [Unknown]
  - Human herpesvirus 6 encephalitis [Recovering/Resolving]
  - Pyrexia [Recovering/Resolving]
  - Diarrhoea [Recovering/Resolving]
  - Off label use [Unknown]

NARRATIVE: CASE EVENT DATE: 20230201
